FAERS Safety Report 8307759-1 (Version None)
Quarter: 2012Q2

REPORT INFORMATION
  Report Type: 
  Country: None (occurrence: None)
  Receive Date: 20120424
  Receipt Date: 20120419
  Transmission Date: 20120825
  Serious: No
  Sender: FDA-Public Use
  Company Number: US-B.I. PHARMACEUTICALS,INC./RIDGEFIELD-2012-BP-07487BP

PATIENT
  Sex: Female

DRUGS (9)
  1. SPIRIVA [Suspect]
     Indication: CHRONIC OBSTRUCTIVE PULMONARY DISEASE
     Dosage: 18 MCG
     Route: 055
     Dates: start: 20110615
  2. PROTONIX [Concomitant]
     Indication: GASTROOESOPHAGEAL REFLUX DISEASE
     Route: 048
  3. ASPIRIN [Concomitant]
     Indication: PROPHYLAXIS
     Dosage: 81 MG
     Route: 048
  4. VITAMIN D [Concomitant]
     Indication: PROPHYLAXIS
     Route: 048
  5. BENTAL [Concomitant]
     Indication: IRRITABLE BOWEL SYNDROME
     Route: 048
  6. MULTI-VITAMIN [Concomitant]
     Indication: PROPHYLAXIS
     Route: 048
  7. PROAIR HFA [Concomitant]
     Indication: CHRONIC OBSTRUCTIVE PULMONARY DISEASE
     Route: 055
  8. ADVAIR DISKUS 100/50 [Concomitant]
     Indication: CHRONIC OBSTRUCTIVE PULMONARY DISEASE
     Dosage: 4 PUF
     Route: 055
  9. PROZAC [Concomitant]
     Indication: DEPRESSION
     Route: 048
     Dates: start: 20120101

REACTIONS (1)
  - CENTRAL NERVOUS SYSTEM LESION [None]
